FAERS Safety Report 23144739 (Version 2)
Quarter: 2023Q4

REPORT INFORMATION
  Report Type: Spontaneous
  Country: US (occurrence: US)
  Receive Date: 20231103
  Receipt Date: 20231107
  Transmission Date: 20240110
  Serious: No
  Sender: FDA-Public Use
  Company Number: US-BRISTOL-MYERS SQUIBB COMPANY-2023-157345

PATIENT
  Age: 71 Year
  Sex: Female
  Weight: 61.23 kg

DRUGS (2)
  1. REVLIMID [Suspect]
     Active Substance: LENALIDOMIDE
     Indication: Plasma cell myeloma
     Route: 048
     Dates: start: 20231101
  2. REVLIMID [Suspect]
     Active Substance: LENALIDOMIDE
     Dosage: FREQUENCY: 3WKSON, 1WKOFF
     Route: 048
     Dates: start: 20231101

REACTIONS (3)
  - Pyrexia [Unknown]
  - Gastrooesophageal reflux disease [Recovering/Resolving]
  - Muscle spasms [Recovered/Resolved]
